FAERS Safety Report 21379484 (Version 2)
Quarter: 2022Q4

REPORT INFORMATION
  Report Type: Spontaneous
  Country: US (occurrence: US)
  Receive Date: 20220927
  Receipt Date: 20221229
  Transmission Date: 20230113
  Serious: No
  Sender: FDA-Public Use
  Company Number: US-CIPLA LTD.-2022US04656

PATIENT
  Sex: Male

DRUGS (1)
  1. ARFORMOTEROL [Suspect]
     Active Substance: ARFORMOTEROL
     Indication: Product used for unknown indication
     Dosage: UNK
     Route: 065
     Dates: end: 202207

REACTIONS (2)
  - Joint swelling [Unknown]
  - Peripheral swelling [Unknown]
